FAERS Safety Report 9219065 (Version 2)
Quarter: 2013Q2

REPORT INFORMATION
  Report Type: Report from Study
  Country: US (occurrence: US)
  Receive Date: 20130409
  Receipt Date: 20130617
  Transmission Date: 20140414
  Serious: Yes (Other)
  Sender: FDA-Public Use
  Company Number: PHEH2013US007700

PATIENT
  Age: 49 Year
  Sex: Male

DRUGS (1)
  1. GILENYA [Suspect]
     Indication: MULTIPLE SCLEROSIS
     Dosage: 0.5 MG, QD
     Route: 048
     Dates: start: 20110606, end: 20130611

REACTIONS (8)
  - Multiple sclerosis relapse [Unknown]
  - Fall [Unknown]
  - Musculoskeletal discomfort [Unknown]
  - Cognitive disorder [Unknown]
  - Emotional disorder [Unknown]
  - Back pain [Unknown]
  - Mental disorder [Unknown]
  - Malaise [Unknown]
